FAERS Safety Report 17686373 (Version 2)
Quarter: 2020Q2

REPORT INFORMATION
  Report Type: Spontaneous
  Country: US (occurrence: US)
  Receive Date: 20200420
  Receipt Date: 20200427
  Transmission Date: 20200714
  Serious: No
  Sender: FDA-Public Use
  Company Number: US-009507513-2004USA005655

PATIENT
  Sex: Female

DRUGS (1)
  1. DULERA [Suspect]
     Active Substance: FORMOTEROL FUMARATE DIHYDRATE\MOMETASONE FUROATE
     Dosage: 2 PUFFS TWICE A DAY
     Route: 055
     Dates: start: 2020, end: 202004

REACTIONS (4)
  - Product container issue [Unknown]
  - No adverse event [Unknown]
  - Wrong technique in product usage process [Unknown]
  - Product dose omission [Unknown]

NARRATIVE: CASE EVENT DATE: 2020
